FAERS Safety Report 5418229-2 (Version None)
Quarter: 2007Q3

REPORT INFORMATION
  Report Type: 
  Country: None (occurrence: None)
  Receive Date: 20070817
  Receipt Date: 20070810
  Transmission Date: 20080115
  Serious: Yes (Hospitalization, Other)
  Sender: FDA-Public Use
  Company Number: BR-ASTRAZENECA-2007UW19712

PATIENT
  Age: 20 Month
  Sex: Male

DRUGS (7)
  1. MEROPENEM [Suspect]
     Indication: CNS VENTRICULITIS
     Route: 042
  2. MEROPENEM [Suspect]
     Route: 042
  3. OXACILLIN [Concomitant]
     Indication: PNEUMONIA ASPIRATION
  4. CEFTRIAXONE [Concomitant]
     Indication: PNEUMONIA ASPIRATION
  5. VANCOMYCIN [Concomitant]
     Indication: CNS VENTRICULITIS
  6. CEFEPIME [Concomitant]
  7. FLUCONAZOLE [Concomitant]
     Indication: FUNGUS CSF TEST POSITIVE

REACTIONS (4)
  - CARDIAC VALVE ABSCESS [None]
  - CSF BACTERIA IDENTIFIED [None]
  - DRUG INEFFECTIVE [None]
  - PYREXIA [None]
